FAERS Safety Report 5837209-6 (Version None)
Quarter: 2008Q3

REPORT INFORMATION
  Report Type: 
  Country: None (occurrence: None)
  Receive Date: 20080807
  Receipt Date: 20080728
  Transmission Date: 20090109
  Serious: Yes (Hospitalization)
  Sender: FDA-Public Use
  Company Number: US-JNJFOC-20080707013

PATIENT
  Sex: Female
  Weight: 56.7 kg

DRUGS (2)
  1. ORTHO-NOVUM 1/50 21 [Suspect]
     Indication: MIGRAINE
     Route: 048
  2. ORTHO-NOVUM 1/50 21 [Suspect]
     Indication: DYSMENORRHOEA
     Route: 048

REACTIONS (4)
  - ENDOMETRIOSIS [None]
  - IRRITABLE BOWEL SYNDROME [None]
  - MIGRAINE [None]
  - OFF LABEL USE [None]
